FAERS Safety Report 8096269-5 (Version None)
Quarter: 2012Q1

REPORT INFORMATION
  Report Type: 
  Country: None (occurrence: None)
  Receive Date: 20120129
  Receipt Date: 20111221
  Transmission Date: 20120608
  Serious: No
  Sender: FDA-Public Use
  Company Number: US-ABBOTT-11P-163-0885935-00

PATIENT
  Sex: Female
  Weight: 83.99 kg

DRUGS (9)
  1. LIPITOR [Concomitant]
     Indication: BLOOD CHOLESTEROL INCREASED
  2. HUMIRA [Suspect]
     Indication: RHEUMATOID ARTHRITIS
     Dates: start: 20060101, end: 20090101
  3. HUMIRA [Suspect]
     Dates: start: 20100101
  4. METHOTREXATE [Concomitant]
     Indication: RHEUMATOID ARTHRITIS
  5. ARAVA [Concomitant]
     Indication: RHEUMATOID ARTHRITIS
  6. FOLIC ACID [Concomitant]
     Indication: RHEUMATOID ARTHRITIS
  7. BYSTOLIC [Concomitant]
     Indication: HYPERTENSION
  8. VITAMIN D [Concomitant]
     Indication: VITAMIN D DECREASED
  9. CELEBREX [Concomitant]
     Indication: RHEUMATOID ARTHRITIS

REACTIONS (3)
  - NASOPHARYNGITIS [None]
  - RHEUMATOID ARTHRITIS [None]
  - JOINT STIFFNESS [None]
